FAERS Safety Report 8315618-3 (Version None)
Quarter: 2012Q2

REPORT INFORMATION
  Report Type: 
  Country: None (occurrence: None)
  Receive Date: 20120426
  Receipt Date: 20120418
  Transmission Date: 20120825
  Serious: Yes (Hospitalization, Other)
  Sender: FDA-Public Use
  Company Number: BR-ROCHE-1061114

PATIENT
  Sex: Female
  Weight: 55 kg

DRUGS (5)
  1. ACTEMRA [Suspect]
     Indication: RHEUMATOID ARTHRITIS
     Dates: start: 20101001, end: 20120301
  2. SYNTHROID [Concomitant]
  3. DIPYRONE TAB [Concomitant]
     Indication: PAIN
  4. OMEPRAZOLE [Concomitant]
  5. DEFLAZACORT [Concomitant]

REACTIONS (3)
  - GALLBLADDER INJURY [None]
  - PANCREATITIS [None]
  - HEPATITIS [None]
